FAERS Safety Report 6118369-9 (Version None)
Quarter: 2009Q1

REPORT INFORMATION
  Report Type: 
  Country: None (occurrence: None)
  Receive Date: 20090314
  Receipt Date: 20090216
  Transmission Date: 20090719
  Serious: No
  Sender: FDA-Public Use
  Company Number: US-ABBOTT-09P-163-0557721-00

PATIENT
  Sex: Male
  Weight: 113.5 kg

DRUGS (7)
  1. HUMIRA [Suspect]
     Indication: PSORIASIS
     Route: 058
     Dates: start: 20090101
  2. HUMIRA [Suspect]
  3. LANTUS [Concomitant]
     Indication: DIABETES MELLITUS
     Route: 058
  4. DIOVAN HCT [Concomitant]
     Indication: HYPERTENSION
  5. VYTORIN [Concomitant]
     Indication: BLOOD CHOLESTEROL INCREASED
  6. ACTOPLUS MET [Concomitant]
     Indication: DIABETES MELLITUS
  7. AVANDIA [Concomitant]
     Indication: DIABETES MELLITUS

REACTIONS (1)
  - DRUG INEFFECTIVE [None]
